FAERS Safety Report 6574931-0 (Version None)
Quarter: 2010Q1

REPORT INFORMATION
  Report Type: 
  Country: None (occurrence: None)
  Receive Date: 20100209
  Receipt Date: 20100127
  Transmission Date: 20100710
  Serious: Yes (Other)
  Sender: FDA-Public Use
  Company Number: PHHY2009US58375

PATIENT
  Sex: Female
  Weight: 103 kg

DRUGS (4)
  1. RECLAST [Suspect]
     Indication: OSTEOPOROSIS
     Dosage: 5 MG, UNK
     Dates: start: 20091117
  2. PRILOSEC [Concomitant]
  3. ALBUTEROL [Concomitant]
  4. CALCIUM WITH VITAMIN D [Concomitant]

REACTIONS (7)
  - BURNING SENSATION [None]
  - EYE IRRITATION [None]
  - FATIGUE [None]
  - HEADACHE [None]
  - IRITIS [None]
  - OCULAR HYPERAEMIA [None]
  - PARAESTHESIA [None]
